FAERS Safety Report 13565554 (Version 2)
Quarter: 2017Q4

REPORT INFORMATION
  Report Type: Report from Study
  Country: None (occurrence: US)
  Receive Date: 20170519
  Receipt Date: 20171220
  Transmission Date: 20180320
  Serious: Yes (Hospitalization, Other)
  Sender: FDA-Public Use
  Company Number: US-ABBVIE-17P-163-1977430-00

PATIENT
  Sex: Male

DRUGS (4)
  1. CREON [Suspect]
     Active Substance: PANCRELIPASE AMYLASE\PANCRELIPASE LIPASE\PANCRELIPASE PROTEASE
     Indication: PANCREATIC FAILURE
     Dosage: 5 CAPSULES WITH EACH MEAL AND 2 CAPSULES WITH SNACKS
     Route: 048
     Dates: start: 2000
  2. CREON [Suspect]
     Active Substance: PANCRELIPASE AMYLASE\PANCRELIPASE LIPASE\PANCRELIPASE PROTEASE
     Indication: PANCREATIC FAILURE
  3. CREON [Suspect]
     Active Substance: PANCRELIPASE AMYLASE\PANCRELIPASE LIPASE\PANCRELIPASE PROTEASE
     Indication: CYSTIC FIBROSIS
  4. INSULIN [Concomitant]
     Active Substance: INSULIN NOS
     Indication: DIABETES MELLITUS

REACTIONS (8)
  - Lung transplant [Recovered/Resolved]
  - Lung transplant [Recovered/Resolved]
  - Depressed level of consciousness [Recovered/Resolved]
  - Photopheresis [Recovered/Resolved]
  - Malaise [Recovering/Resolving]
  - Plasmapheresis [Recovered/Resolved]
  - Lung transplant rejection [Unknown]
  - Weight abnormal [Unknown]

NARRATIVE: CASE EVENT DATE: 2007
